FAERS Safety Report 10165191 (Version 1)
Quarter: 2014Q2

REPORT INFORMATION
  Report Type: Spontaneous
  Country: US (occurrence: US)
  Receive Date: 20140510
  Receipt Date: 20140510
  Transmission Date: 20141212
  Serious: No
  Sender: FDA-Public Use
  Company Number: US-BRISTOL-MYERS SQUIBB COMPANY-19740976

PATIENT
  Age: 70 Year
  Sex: Male
  Weight: 104.33 kg

DRUGS (4)
  1. BYDUREON [Suspect]
     Indication: TYPE 2 DIABETES MELLITUS
     Dosage: JAN06-FEB06?27FEB06-8MAR06?LOT NO:73483 EXP DT:APR16?DOSE 5MCG,2MG
     Route: 058
     Dates: start: 2013
  2. PIOGLITAZONE HCL [Suspect]
     Route: 048
  3. GLIMEPIRIDE [Suspect]
     Route: 048
  4. LANTUS [Suspect]
     Route: 058

REACTIONS (4)
  - Blood glucose decreased [Recovered/Resolved]
  - Lethargy [Not Recovered/Not Resolved]
  - Decreased appetite [Not Recovered/Not Resolved]
  - Weight decreased [Unknown]
